FAERS Safety Report 7134971-X (Version None)
Quarter: 2010Q4

REPORT INFORMATION
  Report Type: 
  Country: None (occurrence: None)
  Receive Date: 20101203
  Receipt Date: 20101125
  Transmission Date: 20110411
  Serious: Yes (Hospitalization)
  Sender: FDA-Public Use
  Company Number: CHNY2010GB00536

PATIENT
  Age: 15 Year
  Sex: Male

DRUGS (6)
  1. PARACETAMOL (NCH) [Suspect]
     Route: 048
  2. ACETYLSALICYLIC ACID SRT [Suspect]
     Route: 048
  3. METHYLPHENIDATE [Suspect]
     Dosage: 80 MG
     Route: 048
  4. SERTRALINE [Suspect]
     Route: 048
  5. MELATONIN [Suspect]
     Route: 048
  6. AMPHETAMINE SULFATE [Suspect]
     Route: 048

REACTIONS (1)
  - MULTIPLE DRUG OVERDOSE [None]
